FAERS Safety Report 19906232 (Version 1)
Quarter: 2021Q3

REPORT INFORMATION
  Report Type: Spontaneous
  Country: US (occurrence: US)
  Receive Date: 20210930
  Receipt Date: 20210930
  Transmission Date: 20211014
  Serious: No
  Sender: FDA-Public Use
  Company Number: US-MYLANLABS-2021M1054598

PATIENT
  Sex: Female
  Weight: 63 kg

DRUGS (1)
  1. ESTRADIOL VAGINAL CREAM USP [Suspect]
     Active Substance: ESTRADIOL
     Indication: PRODUCT USED FOR UNKNOWN INDICATION
     Dosage: 0.01 PERCENT, 3XW (ONE APPLICATOR, 3 TIMES A WEEK)
     Route: 067

REACTIONS (2)
  - Wrong technique in product usage process [Not Recovered/Not Resolved]
  - Device breakage [Not Recovered/Not Resolved]
